FAERS Safety Report 7709055-X (Version None)
Quarter: 2011Q3

REPORT INFORMATION
  Report Type: 
  Country: None (occurrence: None)
  Receive Date: 20110825
  Receipt Date: 20110816
  Transmission Date: 20111222
  Serious: Yes (Death, Other)
  Sender: FDA-Public Use
  Company Number: JP-ROCHE-764941

PATIENT
  Sex: Female
  Weight: 63 kg

DRUGS (8)
  1. AVASTIN [Suspect]
     Indication: LARGE CELL CARCINOMA OF THE RESPIRATORY TRACT STAGE UNSPECIFIED
     Dosage: DOSE DECREASED
     Route: 041
     Dates: start: 20100127, end: 20100127
  2. GRANISETRON HYDROCHLORIDE [Concomitant]
     Route: 041
     Dates: start: 20100127, end: 20100610
  3. CARBOPLATIN [Suspect]
     Dosage: DOSAGE IS UNCERTAIN.
     Route: 041
     Dates: start: 20100218, end: 20100610
  4. DECADRON [Concomitant]
     Route: 041
     Dates: start: 20100127, end: 20100610
  5. ALIMTA [Suspect]
     Indication: LARGE CELL CARCINOMA OF THE RESPIRATORY TRACT STAGE UNSPECIFIED
     Dosage: DOSAGE IS UNCERTAIN.
     Route: 041
     Dates: start: 20100127, end: 20100127
  6. CARBOPLATIN [Suspect]
     Indication: LARGE CELL CARCINOMA OF THE RESPIRATORY TRACT STAGE UNSPECIFIED
     Dosage: DOSE DECREASED
     Route: 041
     Dates: start: 20100127, end: 20100127
  7. AVASTIN [Suspect]
     Dosage: DOSAGE IS UNCERTAIN.
     Route: 041
     Dates: start: 20100218, end: 20100610
  8. ALIMTA [Suspect]
     Dosage: DOSAGE IS UNCERTAIN.
     Route: 041
     Dates: start: 20100218, end: 20100610

REACTIONS (3)
  - THROMBOCYTOPENIA [None]
  - DISEASE PROGRESSION [None]
  - FEBRILE NEUTROPENIA [None]
